FAERS Safety Report 10443981 (Version 1)
Quarter: 2014Q3

REPORT INFORMATION
  Report Type: Spontaneous
  Country: US (occurrence: US)
  Receive Date: 20140910
  Receipt Date: 20140910
  Transmission Date: 20150326
  Serious: No
  Sender: FDA-Public Use
  Company Number: US-TARO-2014TAR00019

PATIENT
  Age: 71 Year
  Sex: Male
  Weight: 82.54 kg

DRUGS (4)
  1. WARFARIN SODIUM TABLETS USP 5MG [Suspect]
     Active Substance: WARFARIN SODIUM
     Dosage: 4 MG, EVERY 48 HOURS
     Route: 048
     Dates: start: 201405
  2. WARFARIN SODIUM TABLETS USP 5MG [Suspect]
     Active Substance: WARFARIN SODIUM
     Dosage: 5 MG, EVERY 48 HOURS
     Route: 048
     Dates: start: 201405
  3. WARFARIN SODIUM TABLETS USP 5MG [Suspect]
     Active Substance: WARFARIN SODIUM
     Dosage: 5 MG, 1X/DAY
     Route: 048
     Dates: start: 200804, end: 201405
  4. UNSPECIFIED VITAMIN [Concomitant]
     Dosage: UNK, 1X/DAY

REACTIONS (5)
  - International normalised ratio decreased [Recovered/Resolved]
  - Pain in extremity [Recovering/Resolving]
  - Erythema [Recovering/Resolving]
  - Drug ineffective for unapproved indication [Unknown]
  - Feeling hot [Recovering/Resolving]

NARRATIVE: CASE EVENT DATE: 201405
